FAERS Safety Report 8436317-3 (Version None)
Quarter: 2012Q2

REPORT INFORMATION
  Report Type: 
  Country: None (occurrence: None)
  Receive Date: 20120614
  Receipt Date: 20120601
  Transmission Date: 20120825
  Serious: Yes (Other)
  Sender: FDA-Public Use
  Company Number: CA-ELI_LILLY_AND_COMPANY-CA201206000703

PATIENT
  Sex: Female

DRUGS (1)
  1. CYMBALTA [Suspect]
     Indication: FIBROMYALGIA
     Dosage: 60 MG, UNKNOWN
     Route: 065
     Dates: start: 20110901, end: 20120511

REACTIONS (16)
  - ASTHENIA [None]
  - PARAESTHESIA [None]
  - HYPERTENSION [None]
  - STOMATITIS [None]
  - DRY MOUTH [None]
  - TONGUE INJURY [None]
  - DIZZINESS [None]
  - DRUG WITHDRAWAL SYNDROME [None]
  - HYPERHIDROSIS [None]
  - INTENTIONAL DRUG MISUSE [None]
  - DECREASED APPETITE [None]
  - PRURITUS [None]
  - CHEST PAIN [None]
  - FATIGUE [None]
  - NIGHT SWEATS [None]
  - SKIN DISORDER [None]
